FAERS Safety Report 6141897-7 (Version None)
Quarter: 2009Q2

REPORT INFORMATION
  Report Type: 
  Country: None (occurrence: None)
  Receive Date: 20090402
  Receipt Date: 20090325
  Transmission Date: 20091009
  Serious: Yes (Other)
  Sender: FDA-Public Use
  Company Number: PHHY2009JP10850

PATIENT
  Age: 63 Year
  Sex: Male

DRUGS (4)
  1. DIOVAN [Suspect]
     Indication: HYPERTENSION
     Dosage: 20 MG, QD
     Route: 048
  2. DIOVAN [Suspect]
     Dosage: 40 MG, QD
     Route: 048
  3. MUCOSTA [Concomitant]
     Dosage: UNK
     Route: 048
  4. BIOFERMIN [Concomitant]
     Dosage: UNK

REACTIONS (2)
  - ABASIA [None]
  - MYALGIA [None]
